FAERS Safety Report 9721433 (Version 5)
Quarter: 2014Q1

REPORT INFORMATION
  Report Type: Spontaneous
  Country: JP (occurrence: JP)
  Receive Date: 20131129
  Receipt Date: 20140131
  Transmission Date: 20141002
  Serious: Yes (Hospitalization, Other)
  Sender: FDA-Public Use
  Company Number: JP-009507513-1311JPN013018

PATIENT
  Age: 53 Year
  Sex: Male

DRUGS (4)
  1. JANUVIA TABLETS 50MG [Suspect]
     Indication: TYPE 2 DIABETES MELLITUS
     Dosage: 50 MG, DIVIDED DOSE FREQUENCY UNKNOWN
     Route: 048
     Dates: start: 201105, end: 2011
  2. JANUVIA TABLETS 50MG [Suspect]
     Dosage: 50 MG, DIVIDED DOSE FREQUENCY UNKNOWN
     Route: 048
     Dates: start: 20110612, end: 20120111
  3. JANUVIA TABLETS 50MG [Suspect]
     Dosage: 50 MG, DIVIDED DOSE FREQUENCY UNKNOWN
     Route: 048
     Dates: start: 2012, end: 201208
  4. GLIMEPIRIDE [Concomitant]
     Indication: TYPE 2 DIABETES MELLITUS
     Dosage: 2 MG, DIVIDED DOSE FREQUENCY UNKNOWN
     Route: 048

REACTIONS (2)
  - Ileus paralytic [Recovered/Resolved]
  - Ileus paralytic [Recovered/Resolved]
